FAERS Safety Report 4550445-4 (Version None)
Quarter: 2005Q1

REPORT INFORMATION
  Report Type: 
  Country: None (occurrence: None)
  Receive Date: 20050112
  Receipt Date: 20041125
  Transmission Date: 20050727
  Serious: Yes (Life-Threatening, Hospitalization)
  Sender: FDA-Public Use
  Company Number: DE-GLAXOSMITHKLINE-D0045331A

PATIENT
  Age: 74 Year
  Sex: Female
  Weight: 42 kg

DRUGS (4)
  1. FORTUM [Suspect]
     Indication: RESPIRATORY TRACT INFECTION
     Dosage: 2MG SINGLE DOSE
     Route: 042
     Dates: start: 20041124, end: 20041124
  2. THOMBRAN [Suspect]
     Dosage: 100MG PER DAY
     Route: 048
  3. DECORTIN [Concomitant]
     Indication: MUSCULOSKELETAL PAIN
     Dosage: 2MG PER DAY
     Route: 048
  4. EQUILIBRIN [Concomitant]
     Indication: DEPRESSION
     Dosage: 120MG PER DAY
     Route: 048

REACTIONS (5)
  - BLOOD PRESSURE DECREASED [None]
  - DRUG INTERACTION [None]
  - DYSPNOEA EXACERBATED [None]
  - HYPERSENSITIVITY [None]
  - INFUSION RELATED REACTION [None]
